FAERS Safety Report 17520534 (Version 1)
Quarter: 2020Q1

REPORT INFORMATION
  Report Type: Report from Study
  Country: US (occurrence: US)
  Receive Date: 20200309
  Receipt Date: 20200309
  Transmission Date: 20200409
  Serious: No
  Sender: FDA-Public Use
  Company Number: US-CELGENEUS-USA-20190602223

PATIENT
  Age: 68 Year
  Sex: Female
  Weight: 64 kg

DRUGS (7)
  1. MAG-200 [Concomitant]
     Indication: SUPPLEMENTATION THERAPY
     Dosage: 200 MG X 1 X 1 DAYS
     Route: 048
     Dates: start: 20180907
  2. FEDRATINIB [Suspect]
     Active Substance: FEDRATINIB
     Indication: PRIMARY MYELOFIBROSIS
     Dosage: 400 MG
     Route: 048
     Dates: start: 20190417
  3. JADNEU [Concomitant]
     Indication: IRON OVERLOAD
     Dosage: 630 MG X 1 X 1 DAYS
     Route: 048
     Dates: start: 20190218
  4. MIRALAX [Concomitant]
     Active Substance: POLYETHYLENE GLYCOL 3350
     Indication: CONSTIPATION
     Dosage: 17 G X PRN
     Route: 048
     Dates: start: 20190415, end: 20190729
  5. IBUPROFEN. [Concomitant]
     Active Substance: IBUPROFEN
     Indication: BACK PAIN
     Dosage: 400 MG X PRN
     Route: 048
     Dates: start: 2015
  6. NAPROXEN. [Concomitant]
     Active Substance: NAPROXEN
     Indication: HEADACHE
     Dosage: 200 MG X PRN
     Route: 048
     Dates: start: 20180926
  7. COLACE [Concomitant]
     Active Substance: DOCUSATE SODIUM
     Indication: CONSTIPATION
     Dosage: 50 MG X PRN
     Route: 048
     Dates: start: 20190730

REACTIONS (1)
  - Vitamin B1 deficiency [Recovered/Resolved]

NARRATIVE: CASE EVENT DATE: 20190515
